FAERS Safety Report 16701908 (Version 2)
Quarter: 2020Q4

REPORT INFORMATION
  Report Type: Report from Study
  Country: None (occurrence: BR)
  Receive Date: 20190814
  Receipt Date: 20201027
  Transmission Date: 20210113
  Serious: Yes (Disabling)
  Sender: FDA-Public Use
  Company Number: BR-ABBVIE-19K-020-2884861-00

PATIENT
  Age: 56 Year
  Sex: Male
  Weight: 68 kg

DRUGS (8)
  1. NESINA [Suspect]
     Active Substance: ALOGLIPTIN BENZOATE
     Indication: DIABETES MELLITUS
     Route: 065
  2. HUMIRA [Suspect]
     Active Substance: ADALIMUMAB
     Indication: COLITIS ULCERATIVE
     Route: 058
  3. HUMIRA [Suspect]
     Active Substance: ADALIMUMAB
     Route: 058
  4. INSULIN [Concomitant]
     Active Substance: INSULIN NOS
     Indication: DIABETES MELLITUS
  5. METFORMIN [Concomitant]
     Active Substance: METFORMIN HYDROCHLORIDE
     Indication: DIABETES MELLITUS
  6. HUMIRA [Suspect]
     Active Substance: ADALIMUMAB
     Indication: COLITIS ULCERATIVE
     Route: 058
     Dates: start: 20161202
  7. GLICLAZIDE [Concomitant]
     Active Substance: GLICLAZIDE
     Indication: DIABETES MELLITUS
  8. ATORVASTATIN [Concomitant]
     Active Substance: ATORVASTATIN
     Indication: BLOOD CHOLESTEROL ABNORMAL

REACTIONS (17)
  - Gastrointestinal disorder [Recovered/Resolved]
  - Urinary tract infection [Recovering/Resolving]
  - Abdominal distension [Recovered/Resolved]
  - Sinusitis [Recovering/Resolving]
  - Injection site pain [Not Recovered/Not Resolved]
  - Pain in extremity [Unknown]
  - Influenza [Unknown]
  - Asthenia [Recovered/Resolved]
  - Dysstasia [Unknown]
  - Immunodeficiency [Recovered/Resolved]
  - Visual impairment [Recovered/Resolved]
  - Fall [Unknown]
  - Gastrointestinal inflammation [Recovered/Resolved]
  - Gastrointestinal oedema [Unknown]
  - Weight decreased [Unknown]
  - Malaise [Unknown]
  - Diabetes mellitus [Unknown]

NARRATIVE: CASE EVENT DATE: 202004
